FAERS Safety Report 10008814 (Version 1)
Quarter: 2014Q1

REPORT INFORMATION
  Report Type: Spontaneous
  Country: US (occurrence: US)
  Receive Date: 20140313
  Receipt Date: 20140313
  Transmission Date: 20141002
  Serious: Yes (Other)
  Sender: FDA-Public Use
  Company Number: US-PFIZER INC-2014067998

PATIENT
  Sex: Male

DRUGS (2)
  1. METFORMIN HCL [Suspect]
     Dosage: 1000 MG, 2X/DAY
     Route: 048
  2. GLIPIZIDE [Suspect]
     Dosage: 10 MG, 2X/DAY (HALF HOUR BEFORE MEALS)

REACTIONS (1)
  - Diabetes mellitus inadequate control [Unknown]
